FAERS Safety Report 10563674 (Version 4)
Quarter: 2015Q1

REPORT INFORMATION
  Report Type: Spontaneous
  Country: GB (occurrence: GB)
  Receive Date: 20141104
  Receipt Date: 20150326
  Transmission Date: 20150720
  Serious: Yes (Life-Threatening, Other)
  Sender: FDA-Public Use
  Company Number: GB-GLAXOSMITHKLINE-GB2014GSK010584

PATIENT
  Age: 42 Year
  Sex: Male

DRUGS (1)
  1. FLIXOTIDE 125 [Suspect]
     Active Substance: FLUTICASONE PROPIONATE
     Indication: ASTHMA
     Dosage: 125 UNK, BID
     Route: 055

REACTIONS (8)
  - Pain [Unknown]
  - Odynophagia [Recovered/Resolved]
  - Dyspnoea [Recovered/Resolved]
  - Pharyngeal injury [Recovered/Resolved]
  - Suffocation feeling [Unknown]
  - Foreign body [Recovered/Resolved]
  - Asphyxia [Unknown]
  - Product quality issue [Unknown]

NARRATIVE: CASE EVENT DATE: 20141019
